FAERS Safety Report 23924776 (Version 1)
Quarter: 2024Q2

REPORT INFORMATION
  Report Type: Spontaneous
  Country: CN (occurrence: CN)
  Receive Date: 20240531
  Receipt Date: 20240531
  Transmission Date: 20240715
  Serious: Yes (Other)
  Sender: FDA-Public Use
  Company Number: None

PATIENT
  Age: 42 Year
  Sex: Male
  Weight: 69 kg

DRUGS (2)
  1. KEPPRA [Suspect]
     Active Substance: LEVETIRACETAM
     Indication: Epilepsy
     Dosage: 0.5 GRAM, ONCE DAILY (QD)
     Route: 048
     Dates: end: 202404
  2. KEPPRA [Suspect]
     Active Substance: LEVETIRACETAM
     Dosage: 0.5 GRAM, ONCE DAILY (QD)
     Route: 048
     Dates: start: 20240426, end: 20240502

REACTIONS (2)
  - Pyrexia [Recovered/Resolved]
  - Off label use [Unknown]

NARRATIVE: CASE EVENT DATE: 20240428
